FAERS Safety Report 12413401 (Version 1)
Quarter: 2016Q2

REPORT INFORMATION
  Report Type: Other
  Country: DE (occurrence: DE)
  Receive Date: 20160527
  Receipt Date: 20160527
  Transmission Date: 20160815
  Serious: Yes (Life-Threatening)
  Sender: FDA-Public Use
  Company Number: DE-MYLANLABS-2016M1021638

PATIENT

DRUGS (4)
  1. NOVALGIN [Suspect]
     Active Substance: METAMIZOLE SODIUM
     Indication: GASTRITIS EROSIVE
     Dosage: 1 G, UNK
     Route: 042
     Dates: start: 20160414, end: 20160417
  2. NOVALGIN [Suspect]
     Active Substance: METAMIZOLE SODIUM
     Indication: GASTRITIS EROSIVE
     Dosage: 500 MG, QID (DAILY DOSE: 2000 MG MILLGRAM(S) EVERY DAYS)
     Route: 048
     Dates: start: 20160416, end: 20160417
  3. LAMOTRIGINE. [Suspect]
     Active Substance: LAMOTRIGINE
     Indication: EPILEPSY
     Dosage: 150 MG, UNK
     Route: 048
  4. VALPROIC ACID. [Suspect]
     Active Substance: VALPROIC ACID
     Indication: EPILEPSY
     Dosage: 600 MG, UNK
     Route: 048

REACTIONS (1)
  - Pure white cell aplasia [Recovered/Resolved]

NARRATIVE: CASE EVENT DATE: 20160416
